FAERS Safety Report 8565647-X (Version None)
Quarter: 2012Q3

REPORT INFORMATION
  Report Type: 
  Country: None (occurrence: None)
  Receive Date: 20120803
  Receipt Date: 20120726
  Transmission Date: 20120928
  Serious: Yes (Hospitalization, Other)
  Sender: FDA-Public Use
  Company Number: DE-ELI_LILLY_AND_COMPANY-DE201207000506

PATIENT
  Age: 43 Year
  Sex: Female

DRUGS (3)
  1. BUDENOFALK [Concomitant]
     Dosage: 3 MG, BID
     Dates: start: 20100101
  2. HUMALOG [Suspect]
     Indication: TYPE 1 DIABETES MELLITUS
     Dosage: UNK
     Route: 058
     Dates: start: 19940101
  3. METOPROLOL SUCCINATE [Concomitant]
     Dosage: 21.75 MG, EACH MORNING
     Dates: start: 20120201

REACTIONS (1)
  - BREAST CANCER [None]
